FAERS Safety Report 11173715 (Version 2)
Quarter: 2015Q2

REPORT INFORMATION
  Report Type: Spontaneous
  Country: BR (occurrence: BR)
  Receive Date: 20150609
  Receipt Date: 20150617
  Transmission Date: 20150821
  Serious: Yes (Other)
  Sender: FDA-Public Use
  Company Number: BR-AMGEN-BRASP2015055019

PATIENT
  Age: 30 Year
  Sex: Female

DRUGS (4)
  1. LEFLUNOMIDE. [Concomitant]
     Active Substance: LEFLUNOMIDE
     Dosage: 20 MG, 1X/DAY
  2. ENBREL [Suspect]
     Active Substance: ETANERCEPT
     Indication: PRODUCT USED FOR UNKNOWN INDICATION
     Dosage: UNK
     Route: 065
     Dates: start: 2008, end: 2010
  3. TOCILIZUMAB [Suspect]
     Active Substance: TOCILIZUMAB
     Indication: PRODUCT USED FOR UNKNOWN INDICATION
     Dosage: 8 MG/KG, UNK
     Route: 065
  4. METHOTREXATE [Concomitant]
     Active Substance: METHOTREXATE
     Dosage: 25 MG, UNK

REACTIONS (12)
  - Red blood cell sedimentation rate abnormal [Unknown]
  - Cerebrovascular accident [Unknown]
  - Fatigue [Unknown]
  - Rheumatoid arthritis [Recovered/Resolved]
  - Anaemia [Unknown]
  - Rheumatoid lung [Unknown]
  - Condition aggravated [Recovered/Resolved]
  - C-reactive protein abnormal [Unknown]
  - Cyanosis [Unknown]
  - Dyspnoea [Unknown]
  - Drug ineffective [Unknown]
  - Vasculitis [Unknown]
